FAERS Safety Report 9542650 (Version 2)
Quarter: 2013Q3

REPORT INFORMATION
  Report Type: Spontaneous
  Country: US (occurrence: US)
  Receive Date: 20130923
  Receipt Date: 20130927
  Transmission Date: 20140515
  Serious: No
  Sender: FDA-Public Use
  Company Number: US-PFIZER INC-2013270212

PATIENT
  Age: 70 Year
  Sex: Male
  Weight: 90.7 kg

DRUGS (6)
  1. VIAGRA [Suspect]
     Indication: ERECTILE DYSFUNCTION
     Dosage: 50 MG, UNK
     Dates: start: 201308
  2. VIAGRA [Interacting]
     Dosage: 100 MG, UNK
     Dates: start: 2013
  3. VIAGRA [Interacting]
     Dosage: 150 MG, UNK
     Dates: start: 2013
  4. METFORMIN HCL [Interacting]
     Indication: DIABETES MELLITUS
     Dosage: 500 MG, 2X/DAY
  5. POTASSIUM [Interacting]
     Indication: CARDIAC DISORDER
     Dosage: UNK
  6. ONGLYZA [Interacting]
     Indication: DIABETES MELLITUS
     Dosage: 5 MG, DAILY

REACTIONS (3)
  - Drug interaction [Unknown]
  - Blood glucose increased [Unknown]
  - Drug ineffective [Unknown]
